FAERS Safety Report 11476663 (Version 1)
Quarter: 2015Q3

REPORT INFORMATION
  Report Type: Spontaneous
  Country: IT (occurrence: IT)
  Receive Date: 20150909
  Receipt Date: 20150909
  Transmission Date: 20151125
  Serious: Yes (Other)
  Sender: FDA-Public Use
  Company Number: IT-GLAXOSMITHKLINE-IT2015GSK127824

PATIENT
  Age: 45 Year
  Sex: Female

DRUGS (5)
  1. TALAVIR [Suspect]
     Active Substance: VALACYCLOVIR HYDROCHLORIDE
     Indication: HERPES VIRUS INFECTION
     Dosage: 3000 MG, QD
     Route: 048
     Dates: start: 20150819, end: 20150822
  2. ACICLIN [Suspect]
     Active Substance: ACYCLOVIR
     Indication: HERPES VIRUS INFECTION
     Dosage: 1 UNK, QD
     Route: 061
     Dates: start: 20150819, end: 20150819
  3. NORVIR [Concomitant]
     Active Substance: RITONAVIR
     Indication: ACUTE HIV INFECTION
     Dosage: 100 MG, UNK
     Route: 048
  4. PREZISTA [Concomitant]
     Active Substance: DARUNAVIR ETHANOLATE
     Indication: ACUTE HIV INFECTION
     Dosage: 800 MG, UNK
     Route: 048
  5. TRUVADA [Concomitant]
     Active Substance: EMTRICITABINE\TENOFOVIR DISOPROXIL FUMARATE
     Indication: ACUTE HIV INFECTION
     Dosage: 1 UNK, UNK
     Route: 048

REACTIONS (2)
  - Dermatitis bullous [Recovering/Resolving]
  - Pruritus [Recovering/Resolving]

NARRATIVE: CASE EVENT DATE: 20150820
